FAERS Safety Report 5310133-3 (Version None)
Quarter: 2007Q1

REPORT INFORMATION
  Report Type: 
  Country: None (occurrence: None)
  Receive Date: 20070201
  Receipt Date: 20060705
  Transmission Date: 20070707
  Serious: Yes (Other)
  Sender: FDA-Public Use
  Company Number: US-2006-017979

PATIENT
  Age: 22 Year
  Sex: Female
  Weight: 68 kg

DRUGS (3)
  1. MIRENA [Suspect]
     Dosage: 20 UG/DAY, CONT, INTRA-UTERINE
     Route: 015
     Dates: start: 20060201, end: 20060505
  2. ZOLOFT [Concomitant]
  3. PRENATAL VITAMINS (MINERALS NOS, NICOTINIC ACID, RETINOL, VITAMIN D NO [Concomitant]

REACTIONS (9)
  - ABDOMINAL PAIN [None]
  - DIZZINESS [None]
  - GENITAL HAEMORRHAGE [None]
  - HEART RATE DECREASED [None]
  - NAUSEA [None]
  - PROCEDURAL PAIN [None]
  - SYNCOPE VASOVAGAL [None]
  - UTERINE PERFORATION [None]
  - VOMITING [None]
